FAERS Safety Report 10265344 (Version 1)
Quarter: 2014Q2

REPORT INFORMATION
  Report Type: Spontaneous
  Country: US (occurrence: US)
  Receive Date: 20140627
  Receipt Date: 20140627
  Transmission Date: 20141212
  Serious: No
  Sender: FDA-Public Use
  Company Number: US-GLAXOSMITHKLINE-A1067707A

PATIENT
  Age: 70 Year
  Sex: Female

DRUGS (2)
  1. MEKINIST [Suspect]
     Indication: METASTATIC MALIGNANT MELANOMA
     Dosage: 1.5MG TWICE PER DAY
     Route: 048
     Dates: start: 20131201
  2. LEVETIRACETAM [Concomitant]

REACTIONS (6)
  - Pruritus generalised [Recovering/Resolving]
  - Dermatitis acneiform [Recovering/Resolving]
  - Rash pustular [Recovering/Resolving]
  - Alopecia [Not Recovered/Not Resolved]
  - Alopecia [Not Recovered/Not Resolved]
  - Erythema [Unknown]
